FAERS Safety Report 21901141 (Version 1)
Quarter: 2023Q1

REPORT INFORMATION
  Report Type: Spontaneous
  Country: US (occurrence: US)
  Receive Date: 20230123
  Receipt Date: 20230123
  Transmission Date: 20230417
  Serious: No
  Sender: FDA-Public Use
  Company Number: US-NOVOPROD-987466

PATIENT
  Sex: Female

DRUGS (1)
  1. OZEMPIC [Suspect]
     Active Substance: SEMAGLUTIDE
     Indication: Weight control
     Dosage: 0.25 MG, QW
     Route: 058
     Dates: start: 20221112

REACTIONS (4)
  - Throat irritation [Unknown]
  - Malaise [Not Recovered/Not Resolved]
  - Product use in unapproved indication [Unknown]
  - Weight loss poor [Unknown]

NARRATIVE: CASE EVENT DATE: 20221112
